FAERS Safety Report 10026192 (Version 2)
Quarter: 2014Q1

REPORT INFORMATION
  Report Type: Spontaneous
  Country: US (occurrence: US)
  Receive Date: 20140320
  Receipt Date: 20140320
  Transmission Date: 20141002
  Serious: No
  Sender: FDA-Public Use
  Company Number: US-ALLERGAN-1317738US

PATIENT
  Age: 86 Year
  Sex: Male

DRUGS (5)
  1. LUMIGAN 0.01% [Suspect]
     Indication: GLAUCOMA
     Dosage: 2 GTT, QHS
     Route: 047
     Dates: start: 20131106, end: 20131109
  2. HIGH BLOOD PRESSURE PILL NOS [Concomitant]
     Indication: HYPERTENSION
  3. PILL FOR CHOLESTEROL NOS [Concomitant]
     Indication: BLOOD CHOLESTEROL
  4. WATER PILL [Concomitant]
     Indication: PRODUCT USED FOR UNKNOWN INDICATION
  5. TRIGLYCERIDE PILL [Concomitant]
     Indication: PRODUCT USED FOR UNKNOWN INDICATION

REACTIONS (2)
  - Rash papular [Not Recovered/Not Resolved]
  - Rash pruritic [Not Recovered/Not Resolved]
